FAERS Safety Report 7168092-7 (Version None)
Quarter: 2010Q4

REPORT INFORMATION
  Report Type: 
  Country: None (occurrence: None)
  Receive Date: 20101216
  Receipt Date: 20101206
  Transmission Date: 20110411
  Serious: Yes (Hospitalization)
  Sender: FDA-Public Use
  Company Number: JP-PFIZER INC-2010172845

PATIENT
  Age: 65 Year
  Sex: Female

DRUGS (7)
  1. CAMPTOSAR [Suspect]
     Indication: COLON CANCER
     Dosage: 180 MG/M2, UNK
     Route: 041
     Dates: start: 20100406, end: 20101116
  2. CALCIUM LEVOFOLINATE [Suspect]
     Indication: COLON CANCER
     Dosage: 200 MG/M2, UNK
     Route: 041
     Dates: start: 20100406, end: 20101116
  3. FLUOROURACIL [Suspect]
     Indication: COLON CANCER
     Dosage: 400 MG/M2
     Route: 040
     Dates: start: 20100406, end: 20101116
  4. FLUOROURACIL [Suspect]
     Dosage: 2400 MG/M2, UNK
     Route: 041
     Dates: start: 20100406, end: 20101116
  5. AVASTIN [Suspect]
     Indication: COLON CANCER
     Dosage: 5 MG/KG, UNK
     Route: 041
     Dates: start: 20100406, end: 20101116
  6. CRAVIT [Concomitant]
     Indication: PYREXIA
     Dosage: UNK
     Route: 048
     Dates: start: 20101127
  7. ZITHROMAX [Concomitant]
     Indication: PYREXIA
     Dosage: UNK
     Route: 048
     Dates: start: 20101204

REACTIONS (1)
  - PNEUMONIA [None]
